FAERS Safety Report 4724722-8 (Version None)
Quarter: 2005Q3

REPORT INFORMATION
  Report Type: 
  Country: None (occurrence: None)
  Receive Date: 20050720
  Receipt Date: 20050720
  Transmission Date: 20060218
  Serious: Yes (Life-Threatening, Hospitalization)
  Sender: FDA-Public Use
  Company Number: None

PATIENT
  Age: 43 Year
  Sex: Female
  Weight: 63.5036 kg

DRUGS (2)
  1. OXYCONTIN [Suspect]
     Indication: BACK PAIN
     Dosage: VARIED    VARIED   ORAL
     Route: 048
     Dates: start: 20011001, end: 20031127
  2. OXYCONTIN [Suspect]
     Indication: PAIN
     Dosage: VARIED    VARIED   ORAL
     Route: 048
     Dates: start: 20011001, end: 20031127

REACTIONS (9)
  - AFFECTIVE DISORDER [None]
  - DRUG EFFECT DECREASED [None]
  - EMOTIONAL DISORDER [None]
  - INSOMNIA [None]
  - MENTAL DISORDER [None]
  - MUSCLE DISORDER [None]
  - MYALGIA [None]
  - PAIN [None]
  - SUICIDAL IDEATION [None]
